FAERS Safety Report 7464745-1 (Version None)
Quarter: 2011Q2

REPORT INFORMATION
  Report Type: 
  Country: None (occurrence: None)
  Receive Date: 20110509
  Receipt Date: 20110426
  Transmission Date: 20111010
  Serious: Yes (Other)
  Sender: FDA-Public Use
  Company Number: DE-ELI_LILLY_AND_COMPANY-DE201104007345

PATIENT
  Age: 77 Year
  Sex: Female

DRUGS (4)
  1. CALCIUM SANDOZ FORTE D [Concomitant]
  2. VITAMIN B-12 [Concomitant]
  3. FORTEO [Suspect]
     Indication: OSTEOPOROSIS
     Dosage: UNK, QD
     Route: 058
     Dates: start: 20091028
  4. VOLTAREN [Concomitant]
     Dosage: 1 DF, QD

REACTIONS (6)
  - FALL [None]
  - CARDIOVASCULAR INSUFFICIENCY [None]
  - LOSS OF CONSCIOUSNESS [None]
  - SYNCOPE [None]
  - PUBIS FRACTURE [None]
  - PELVIC FRACTURE [None]
